FAERS Safety Report 22127017 (Version 1)
Quarter: 2023Q1

REPORT INFORMATION
  Report Type: Spontaneous
  Country: US (occurrence: US)
  Receive Date: 20230322
  Receipt Date: 20230322
  Transmission Date: 20230418
  Serious: No
  Sender: FDA-Public Use
  Company Number: US-TARO PHARMACEUTICALS USA INC.-2022TAR01386

PATIENT

DRUGS (1)
  1. TRETINOIN [Suspect]
     Active Substance: TRETINOIN
     Indication: Skin depigmentation
     Dosage: UNK, ONCE AT NIGHT,TOPICALLY TO FACE
     Route: 061

REACTIONS (4)
  - Application site pain [Recovered/Resolved]
  - Eye irritation [Recovered/Resolved]
  - Application site rash [Recovered/Resolved]
  - Discomfort [Recovered/Resolved]
